FAERS Safety Report 6012226-4 (Version None)
Quarter: 2008Q4

REPORT INFORMATION
  Report Type: 
  Country: None (occurrence: None)
  Receive Date: 20081218
  Receipt Date: 20081208
  Transmission Date: 20090506
  Serious: Yes (Hospitalization)
  Sender: FDA-Public Use
  Company Number: US-ABBOTT-08P-163-0489152-00

PATIENT
  Sex: Female
  Weight: 60.9 kg

DRUGS (1)
  1. SIMCOR [Suspect]
     Indication: HYPERLIPIDAEMIA
     Dosage: NIACIN ER/SIMVASTATIN 1000/40
     Route: 048
     Dates: start: 20081112, end: 20081112

REACTIONS (1)
  - CHEST PAIN [None]
